FAERS Safety Report 6222692-7 (Version None)
Quarter: 2009Q2

REPORT INFORMATION
  Report Type: 
  Country: None (occurrence: None)
  Receive Date: 20090609
  Receipt Date: 20090525
  Transmission Date: 20091009
  Serious: Yes (Hospitalization, Other)
  Sender: FDA-Public Use
  Company Number: DSJ-2008-09470

PATIENT
  Age: 61 Year
  Sex: Male
  Weight: 56 kg

DRUGS (8)
  1. OLMESARTAN MEDOXOMIL [Suspect]
     Indication: HYPERTENSION
     Dosage: 20 MG (20 MG, 1 IN 1 D), PER ORAL, 40 MG (20 MG, 2 IN 1 D), PER ORAL, 20 MG (20 MG, 1 IN 1 D), PER O
     Route: 048
     Dates: start: 20060725, end: 20080701
  2. OLMESARTAN MEDOXOMIL [Suspect]
     Indication: HYPERTENSION
     Dosage: 20 MG (20 MG, 1 IN 1 D), PER ORAL, 40 MG (20 MG, 2 IN 1 D), PER ORAL, 20 MG (20 MG, 1 IN 1 D), PER O
     Route: 048
     Dates: start: 20080702, end: 20080723
  3. OLMESARTAN MEDOXOMIL [Suspect]
     Indication: HYPERTENSION
     Dosage: 20 MG (20 MG, 1 IN 1 D), PER ORAL, 40 MG (20 MG, 2 IN 1 D), PER ORAL, 20 MG (20 MG, 1 IN 1 D), PER O
     Route: 048
     Dates: start: 20080804, end: 20080810
  4. INGREDIENT UNKNOWN [Concomitant]
  5. HALCION [Concomitant]
  6. ASPIRIN [Concomitant]
  7. LANSOPRAZOLE [Concomitant]
  8. MILLIS (GLYCERYL TRINITRATE) (GLYCERYL TRINITRATE) [Concomitant]

REACTIONS (5)
  - ACUTE MYOCARDIAL INFARCTION [None]
  - BLOOD GLUCOSE INCREASED [None]
  - DYSARTHRIA [None]
  - HYPOAESTHESIA [None]
  - HYPOGLYCAEMIA [None]
